FAERS Safety Report 6748805-6 (Version None)
Quarter: 2010Q2

REPORT INFORMATION
  Report Type: 
  Country: None (occurrence: None)
  Receive Date: 20100601
  Receipt Date: 20100521
  Transmission Date: 20101027
  Serious: Yes (Other)
  Sender: FDA-Public Use
  Company Number: PHHY2010JP25652

PATIENT
  Age: 42 Year
  Sex: Male

DRUGS (12)
  1. TEGRETOL [Suspect]
     Indication: EPILEPSY
     Dosage: UNK
     Route: 048
  2. VALPROATE SODIUM [Concomitant]
     Indication: EPILEPSY
     Dosage: UNK
     Route: 048
  3. PHENYTOIN [Concomitant]
     Indication: EPILEPSY
     Dosage: UNK
     Route: 048
  4. HALOPERIDOL [Concomitant]
     Indication: AUTISM
     Dosage: UNK
  5. ZOTEPINE [Concomitant]
     Indication: AUTISM
     Route: 048
  6. LITHIUM CARBONATE CAP [Concomitant]
     Indication: AUTISM
     Route: 048
  7. LEVOMEPROMAZINE MALEATE [Concomitant]
     Indication: AUTISM
     Route: 048
  8. BIPERIDEN HYDROCHLORIDE [Concomitant]
     Dosage: UNK
     Route: 048
  9. TRIHEXYPHENIDYL HCL [Concomitant]
     Dosage: UNK
     Route: 048
  10. ZOLPIDEM TARTRATE [Concomitant]
     Indication: AUTISM
     Dosage: UNK
     Route: 048
  11. BROTIZOLAM [Concomitant]
     Indication: AUTISM
     Dosage: UNK
     Route: 048
  12. DIAZEPAM [Concomitant]
     Indication: AUTISM
     Dosage: UNK
     Route: 048

REACTIONS (10)
  - GINGIVAL DISORDER [None]
  - GINGIVAL ERYTHEMA [None]
  - GINGIVAL HYPERPLASIA [None]
  - GINGIVAL OEDEMA [None]
  - GINGIVAL SWELLING [None]
  - GINGIVITIS [None]
  - LOOSE TOOTH [None]
  - OROPHARYNGEAL PLAQUE [None]
  - PERIODONTITIS [None]
  - TOOTH RESORPTION [None]
